FAERS Safety Report 10782638 (Version 3)
Quarter: 2015Q2

REPORT INFORMATION
  Report Type: Report from Study
  Country: NO (occurrence: NO)
  Receive Date: 20150210
  Receipt Date: 20150521
  Transmission Date: 20150821
  Serious: Yes (Hospitalization)
  Sender: FDA-Public Use
  Company Number: NO-TEVA-538077ISR

PATIENT
  Age: 59 Year
  Sex: Female

DRUGS (18)
  1. EPIRUBICIN [Suspect]
     Active Substance: EPIRUBICIN
     Indication: HER-2 POSITIVE BREAST CANCER
     Dosage: 100 MG/M2, FOR 12 WEEKS (CYCLE 1-4) (AS PER PROTOCOL)
     Route: 042
     Dates: start: 20141229
  2. ONDANSETRON [Concomitant]
     Active Substance: ONDANSETRON
     Indication: NAUSEA
     Dosage: 8 MILLIGRAM DAILY;
     Route: 048
     Dates: start: 20141229
  3. DERMOVATE [Concomitant]
     Active Substance: CLOBETASOL
     Indication: PSORIASIS
     Route: 062
  4. LAXOBERAL [Concomitant]
     Active Substance: SODIUM PICOSULFATE
     Indication: CONSTIPATION
     Dosage: 10 GTT DAILY;
     Route: 048
     Dates: start: 20141229
  5. METOCLOPRAMID [Concomitant]
     Active Substance: METOCLOPRAMIDE
     Indication: NAUSEA
     Dosage: 10 MILLIGRAM DAILY;
     Route: 048
     Dates: start: 20141229
  6. KLACID OD [Concomitant]
     Active Substance: CLARITHROMYCIN
     Indication: SINUSITIS
     Dosage: 500 MILLIGRAM DAILY;
     Route: 048
     Dates: start: 20150109
  7. ABILIFY [Concomitant]
     Active Substance: ARIPIPRAZOLE
     Indication: PSYCHOTIC DISORDER
     Route: 048
  8. OTRIVIN [Concomitant]
     Active Substance: XYLOMETAZOLINE
     Indication: SINUSITIS
     Dosage: 1 UKN, UNK
     Route: 006
     Dates: start: 20150107
  9. TRASTUZUMAB [Suspect]
     Active Substance: TRASTUZUMAB
     Indication: HER-2 POSITIVE BREAST CANCER
     Dosage: .381 MG/KG DAILY;
     Route: 042
  10. DEXAMETHASONE. [Concomitant]
     Active Substance: DEXAMETHASONE
     Indication: NAUSEA
     Dosage: 8 MILLIGRAM DAILY;
     Route: 048
     Dates: start: 20141229
  11. DUPHALAC [Concomitant]
     Active Substance: LACTULOSE
     Indication: CONSTIPATION
     Dosage: 10 MILLIGRAM DAILY;
     Route: 048
     Dates: start: 20141229
  12. PERTUZUMAB [Suspect]
     Active Substance: PERTUZUMAB
     Indication: HER-2 POSITIVE BREAST CANCER
     Dosage: 840 MG, EVERY 3 WEEKS
     Route: 042
  13. NASONEX [Concomitant]
     Active Substance: MOMETASONE FUROATE
     Indication: SINUSITIS
     Dosage: 100 MICROGRAM DAILY;
     Route: 065
     Dates: start: 20150107
  14. 5 FLUORO URACIL [Suspect]
     Active Substance: FLUOROURACIL
     Indication: HER-2 POSITIVE BREAST CANCER
     Dosage: 500 MG/M2, FOR 12 WEEKS (CYCLE 1-4) (AS PER PROTOCOL)
     Route: 042
     Dates: start: 20141229
  15. SOMAC [Concomitant]
     Active Substance: PANTOPRAZOLE SODIUM
     Indication: DYSPEPSIA
     Dosage: 40 MILLIGRAM DAILY;
     Route: 048
     Dates: start: 20150102
  16. EMEND [Concomitant]
     Active Substance: APREPITANT
     Indication: NAUSEA
     Route: 048
     Dates: start: 20141229
  17. CYCLOPHOSPHAMIDE. [Suspect]
     Active Substance: CYCLOPHOSPHAMIDE
     Indication: HER-2 POSITIVE BREAST CANCER
     Dosage: 600 MG/M2, FOR 12 WEEKS (CYCLE 1 TO 4) (AS PER PROTOCOL)
     Route: 042
     Dates: start: 20141229
  18. PEGFILGRASTIM [Concomitant]
     Active Substance: PEGFILGRASTIM
     Indication: NEUTROPENIA
     Dosage: 6 MILLIGRAM DAILY;
     Dates: start: 20141230

REACTIONS (4)
  - Febrile neutropenia [Recovered/Resolved]
  - Swelling face [Unknown]
  - Pyrexia [Unknown]
  - Sinusitis [Unknown]

NARRATIVE: CASE EVENT DATE: 20150107
